FAERS Safety Report 4730231-2 (Version None)
Quarter: 2005Q3

REPORT INFORMATION
  Report Type: 
  Country: None (occurrence: None)
  Receive Date: 20050728
  Receipt Date: 20050725
  Transmission Date: 20060218
  Serious: Yes (Other)
  Sender: FDA-Public Use
  Company Number: 200510454BNE

PATIENT
  Age: 69 Year
  Sex: Male
  Weight: 82 kg

DRUGS (14)
  1. CIPROFLOXACIN [Suspect]
     Indication: SEPSIS
     Dosage: 400 MG, BID, INTRAVENOUS
     Route: 042
     Dates: start: 20050705
  2. ATORVASTATIN CALCIUM [Concomitant]
  3. ASPIRIN [Concomitant]
  4. ZOPICLONE [Concomitant]
  5. AMLODIPINE [Concomitant]
  6. ENOXAPARIN SODIUM [Concomitant]
  7. ONDANSETRON [Concomitant]
  8. CYCLIZINE [Concomitant]
  9. BENDROFLUAZIDE [Concomitant]
  10. METOCLOPRAMIDE [Concomitant]
  11. ERYTHROMYCIN [Concomitant]
  12. OMEPRAZOLE [Concomitant]
  13. PARACETAMOL [Concomitant]
  14. DOXAZOSIN [Concomitant]

REACTIONS (2)
  - ACTIVATED PARTIAL THROMBOPLASTIN TIME PROLONGED [None]
  - INTERNATIONAL NORMALISED RATIO INCREASED [None]
